FAERS Safety Report 19921060 (Version 7)
Quarter: 2022Q3

REPORT INFORMATION
  Report Type: Report from Study
  Country: BE (occurrence: BE)
  Receive Date: 20211006
  Receipt Date: 20220818
  Transmission Date: 20221027
  Serious: Yes (Life-Threatening, Hospitalization, Other)
  Sender: FDA-Public Use
  Company Number: BE-BRISTOL-MYERS SQUIBB COMPANY-BMS-2021-021965

PATIENT
  Age: 70 Year
  Sex: Male
  Weight: 58 kg

DRUGS (46)
  1. CISPLATIN [Suspect]
     Active Substance: CISPLATIN
     Indication: Non-small cell lung cancer
     Route: 065
     Dates: start: 20210222
  2. PEMETREXED DISODIUM [Suspect]
     Active Substance: PEMETREXED DISODIUM
     Indication: Non-small cell lung cancer
     Route: 065
     Dates: start: 20210222
  3. DEXAMETHASONE [Concomitant]
     Active Substance: DEXAMETHASONE
     Indication: Product used for unknown indication
     Route: 042
     Dates: start: 20210222, end: 20210222
  4. ACETAMINOPHEN [Concomitant]
     Active Substance: ACETAMINOPHEN
     Indication: Product used for unknown indication
     Dosage: EVERY 8 HOURS
     Route: 048
     Dates: start: 202012, end: 20210216
  5. ACETAMINOPHEN [Concomitant]
     Active Substance: ACETAMINOPHEN
     Dosage: 4 TIMES PER DAY
     Route: 042
     Dates: start: 20210216, end: 20210218
  6. ACETAMINOPHEN [Concomitant]
     Active Substance: ACETAMINOPHEN
     Dosage: 4 TIMES PER DAY
     Route: 048
     Dates: start: 20210218, end: 20210302
  7. MOMETASONE [Concomitant]
     Active Substance: MOMETASONE
     Indication: Product used for unknown indication
     Dosage: DAILY; PER DAY
     Route: 055
     Dates: start: 1998
  8. MOMETASONE [Concomitant]
     Active Substance: MOMETASONE
     Dosage: 1 DOSAGE FORM= 2 UNITS NOS, AS NEEDED
     Route: 055
     Dates: start: 1998
  9. MOMETASONE [Concomitant]
     Active Substance: MOMETASONE
  10. TRAMADOL HYDROCHLORIDE [Concomitant]
     Active Substance: TRAMADOL HYDROCHLORIDE
     Indication: Product used for unknown indication
     Dosage: AS NEEDED
     Route: 048
     Dates: start: 202101, end: 20210301
  11. TRAMADOL HYDROCHLORIDE [Concomitant]
     Active Substance: TRAMADOL HYDROCHLORIDE
     Dosage: 4 TIMES PER DAY
     Route: 042
     Dates: start: 20210216, end: 20210217
  12. TRAMADOL HYDROCHLORIDE [Concomitant]
     Active Substance: TRAMADOL HYDROCHLORIDE
  13. PIRITRAMIDE [Concomitant]
     Active Substance: PIRITRAMIDE
     Indication: Product used for unknown indication
     Dosage: AS NEEDED
     Route: 042
     Dates: start: 20210216, end: 20210216
  14. PIRITRAMIDE [Concomitant]
     Active Substance: PIRITRAMIDE
  15. ENOXAPARIN SODIUM [Concomitant]
     Active Substance: ENOXAPARIN SODIUM
     Indication: Prophylaxis
     Dosage: DAILY; PER DAY
     Route: 058
     Dates: start: 20210217, end: 20210221
  16. ENOXAPARIN SODIUM [Concomitant]
     Active Substance: ENOXAPARIN SODIUM
  17. FOLIC ACID [Concomitant]
     Active Substance: FOLIC ACID
     Indication: Prophylaxis
     Dosage: DAILY; PER DAY
     Route: 048
     Dates: start: 20210222, end: 20210411
  18. FOLIC ACID [Concomitant]
     Active Substance: FOLIC ACID
     Dosage: DAILY; PER DAY
     Route: 048
     Dates: start: 20210208, end: 20210507
  19. FOLIC ACID [Concomitant]
     Active Substance: FOLIC ACID
  20. SODIUM CHLORIDE [Concomitant]
     Active Substance: SODIUM CHLORIDE
     Indication: Decreased appetite
     Dosage: EVERY 24 HOURS
     Route: 042
     Dates: start: 20210301, end: 20210302
  21. SODIUM CHLORIDE [Concomitant]
     Active Substance: SODIUM CHLORIDE
     Indication: Dehydration
     Dosage: EVERY 24 HOURS
     Route: 042
     Dates: start: 20210301, end: 20210313
  22. LORAZEPAM [Concomitant]
     Active Substance: LORAZEPAM
     Indication: Product used for unknown indication
     Dosage: DAILY; PER DAY
     Route: 048
     Dates: start: 20210208, end: 20210824
  23. LORAZEPAM [Concomitant]
     Active Substance: LORAZEPAM
  24. LORAZEPAM [Concomitant]
     Active Substance: LORAZEPAM
  25. BUDESONIDE [Concomitant]
     Active Substance: BUDESONIDE
     Indication: Prophylaxis
     Dosage: DAILY; PER DAY
     Route: 055
     Dates: start: 1998
  26. BUDESONIDE [Concomitant]
     Active Substance: BUDESONIDE
  27. BUDESONIDE [Concomitant]
     Active Substance: BUDESONIDE
  28. FUROSEMIDE [Concomitant]
     Active Substance: FUROSEMIDE
     Indication: Product used for unknown indication
     Route: 042
     Dates: start: 20210222, end: 20210222
  29. FUROSEMIDE [Concomitant]
     Active Substance: FUROSEMIDE
  30. FUROSEMIDE [Concomitant]
     Active Substance: FUROSEMIDE
  31. MANNITOL [Concomitant]
     Active Substance: MANNITOL
     Indication: Product used for unknown indication
     Route: 042
     Dates: start: 20210222, end: 20210222
  32. AKYNZEO (NETUPITANT\PALONOSETRON) [Concomitant]
     Active Substance: NETUPITANT\PALONOSETRON
     Indication: Product used for unknown indication
     Route: 048
     Dates: start: 20210222, end: 20210222
  33. VITAMIN B12 [Concomitant]
     Active Substance: CYANOCOBALAMIN
     Indication: Prophylaxis
     Route: 042
     Dates: start: 20210208
  34. MEDROL [Concomitant]
     Active Substance: METHYLPREDNISOLONE
     Indication: Prophylaxis
     Dosage: EVERY 12 HOURS
     Route: 048
     Dates: start: 20210221, end: 20210223
  35. MOTILIUM [Concomitant]
     Active Substance: DOMPERIDONE
     Indication: Product used for unknown indication
     Dosage: AS NEEDED
     Route: 048
     Dates: start: 202102, end: 20210215
  36. MOVICOL [Concomitant]
     Active Substance: POLYETHYLENE GLYCOL 3350\POTASSIUM CHLORIDE\SODIUM BICARBONATE\SODIUM CHLORIDE
     Indication: Product used for unknown indication
     Dosage: AS NEEDED
     Route: 048
     Dates: start: 20210215, end: 20210507
  37. MAXIDEX [Concomitant]
     Active Substance: DEXAMETHASONE
     Indication: Prophylaxis
     Dosage: 1 DOSAGE FORM= 0.1 UNITS NOS, AS NEEDED
     Route: 001
     Dates: start: 1998
  38. DEXERYL [Concomitant]
     Indication: Prophylaxis
     Dosage: 1 DOSAGE FORM= 1 UNITS NOS, QD
     Route: 061
     Dates: start: 2020
  39. LITICAN [ALIZAPRIDE] [Concomitant]
     Indication: Prophylaxis
     Dosage: AS NEEDED
     Route: 048
     Dates: start: 20210215, end: 20210216
  40. LITICAN [ALIZAPRIDE] [Concomitant]
     Dosage: 4 UNITS IN 1 DAY
     Route: 042
     Dates: start: 20210216, end: 20210217
  41. LITICAN [ALIZAPRIDE] [Concomitant]
     Dosage: AS NEEDED
     Route: 048
     Dates: start: 20210217, end: 20210302
  42. LITICAN [ALIZAPRIDE] [Concomitant]
     Route: 042
     Dates: start: 20210301, end: 20210308
  43. ALBUTEROL SULFATE [Concomitant]
     Active Substance: ALBUTEROL SULFATE
     Indication: Product used for unknown indication
     Dosage: AS NEEDED
     Route: 055
     Dates: start: 20200831
  44. CEFAZOLIN [Concomitant]
     Active Substance: CEFAZOLIN
     Indication: Prophylaxis
     Dosage: ONCE
     Route: 042
     Dates: start: 20210216, end: 20210217
  45. NALOXONE HYDROCHLORIDE\TILIDINE HYDROCHLORIDE [Concomitant]
     Active Substance: NALOXONE HYDROCHLORIDE\TILIDINE HYDROCHLORIDE
     Indication: Procedural pain
     Dosage: 4 UNITS IN 1 DAY
     Route: 048
     Dates: start: 20210220, end: 20210222
  46. MORPHINE [Concomitant]
     Active Substance: MORPHINE
     Indication: Procedural pain
     Dosage: AS NEEDED
     Route: 042
     Dates: start: 20210216, end: 20210220

REACTIONS (4)
  - Neutropenia [Recovered/Resolved]
  - White blood cell count decreased [Recovered/Resolved]
  - Anaemia [Recovered/Resolved]
  - General physical health deterioration [Recovered/Resolved]

NARRATIVE: CASE EVENT DATE: 20210301
